FAERS Safety Report 22353809 (Version 1)
Quarter: 2023Q2

REPORT INFORMATION
  Report Type: Spontaneous
  Country: CA (occurrence: None)
  Receive Date: 20230523
  Receipt Date: 20230523
  Transmission Date: 20230722
  Serious: Yes (Hospitalization)
  Sender: FDA-Public Use
  Company Number: 2023A115074

PATIENT
  Sex: Female

DRUGS (1)
  1. DAPAGLIFLOZIN [Suspect]
     Active Substance: DAPAGLIFLOZIN
     Route: 048

REACTIONS (22)
  - Hypoaesthesia [Unknown]
  - Dizziness [Unknown]
  - Fatigue [Unknown]
  - Nausea [Unknown]
  - Abdominal pain [Unknown]
  - Urinary tract infection [Unknown]
  - Malaise [Unknown]
  - Dry mouth [Unknown]
  - Vision blurred [Unknown]
  - Confusional state [Unknown]
  - Swelling face [Unknown]
  - Decreased appetite [Unknown]
  - Pain [Unknown]
  - Back pain [Unknown]
  - Headache [Unknown]
  - Chills [Unknown]
  - Nightmare [Unknown]
  - Dehydration [Unknown]
  - Thirst [Unknown]
  - Dysgeusia [Unknown]
  - Blood glucose abnormal [Unknown]
  - Renal impairment [Unknown]
